FAERS Safety Report 7321086-0 (Version None)
Quarter: 2011Q1

REPORT INFORMATION
  Report Type: 
  Country: None (occurrence: None)
  Receive Date: 20110228
  Receipt Date: 20110217
  Transmission Date: 20110831
  Serious: Yes (Life-Threatening, Hospitalization)
  Sender: FDA-Public Use
  Company Number: RO-JNJFOC-20110200555

PATIENT
  Sex: Female
  Weight: 60 kg

DRUGS (13)
  1. METHOTREXATE [Concomitant]
     Indication: RHEUMATOID ARTHRITIS
     Route: 048
  2. SOLU-MEDROL [Concomitant]
     Dosage: VARIABLE DOSE
  3. OMEZ [Concomitant]
     Indication: PROPHYLAXIS
     Route: 065
  4. PRESTARIUM [Concomitant]
     Indication: HYPOTENSION
     Route: 065
  5. ATORVASTATIN [Concomitant]
     Indication: DYSLIPIDAEMIA
     Route: 065
  6. INFLIXIMAB [Suspect]
     Indication: RHEUMATOID ARTHRITIS
     Route: 042
  7. INFLIXIMAB [Suspect]
     Route: 042
  8. ASPENTER [Concomitant]
     Indication: HYPOTENSION
     Route: 065
  9. FOSAVANCE [Concomitant]
     Indication: OSTEOPOROSIS
     Route: 065
  10. PREDNISONE [Concomitant]
     Route: 065
  11. PENTOXIFYLLINE [Concomitant]
     Indication: PURPURA
     Route: 065
  12. DETRALEX [Concomitant]
     Indication: VENOUS INSUFFICIENCY
     Route: 065
  13. THIOGAMMA [Concomitant]
     Indication: POLYNEUROPATHY CHRONIC
     Route: 065

REACTIONS (4)
  - PYREXIA [None]
  - LEUKAEMOID REACTION [None]
  - T-CELL LYMPHOMA [None]
  - LYMPHADENOPATHY [None]
